FAERS Safety Report 22815235 (Version 3)
Quarter: 2023Q4

REPORT INFORMATION
  Report Type: Report from Study
  Country: US (occurrence: US)
  Receive Date: 20230811
  Receipt Date: 20231127
  Transmission Date: 20240110
  Serious: Yes (Hospitalization)
  Sender: FDA-Public Use
  Company Number: US-BAUSCH-BL-2023-012146

PATIENT
  Age: 70 Year
  Sex: Male
  Weight: 116.68 kg

DRUGS (16)
  1. XIFAXAN [Suspect]
     Active Substance: RIFAXIMIN
     Indication: Hepatic encephalopathy
     Route: 065
     Dates: end: 2023
  2. XIFAXAN [Suspect]
     Active Substance: RIFAXIMIN
     Indication: Cryptogenic cirrhosis
     Route: 048
     Dates: start: 20230810
  3. LACTULOSE [Concomitant]
     Active Substance: LACTULOSE
     Indication: Hepatic encephalopathy
     Dosage: 20 GRAM/30 ML, TAKE 15 MILLILITER BY ORAL ROUTE UP TO 3 TIMES (TITRATE TO HAVE 3 BM^S IN 24 HOURS)
     Route: 048
     Dates: start: 20230515
  4. LACTULOSE [Concomitant]
     Active Substance: LACTULOSE
     Indication: Cryptogenic cirrhosis
  5. ASPIRIN [Concomitant]
     Active Substance: ASPIRIN
     Indication: Product used for unknown indication
     Route: 048
     Dates: start: 20230503
  6. CARVEDILOL [Concomitant]
     Active Substance: CARVEDILOL
     Indication: Product used for unknown indication
     Dosage: WITH FOOD
     Route: 048
     Dates: start: 20230503
  7. CARVEDILOL [Concomitant]
     Active Substance: CARVEDILOL
     Indication: Product used for unknown indication
  8. GLIPIZIDE [Concomitant]
     Active Substance: GLIPIZIDE
     Indication: Product used for unknown indication
     Dosage: BEFORE MEALS
     Route: 048
     Dates: start: 20230503
  9. TORSEMIDE [Concomitant]
     Active Substance: TORSEMIDE
     Indication: Product used for unknown indication
     Route: 048
     Dates: start: 20230503
  10. AMLODIPINE [Concomitant]
     Active Substance: AMLODIPINE BESYLATE
     Indication: Product used for unknown indication
     Route: 048
     Dates: start: 20230503
  11. ATORVASTATIN [Concomitant]
     Active Substance: ATORVASTATIN
     Indication: Product used for unknown indication
     Route: 048
     Dates: start: 20230503
  12. SPIRONOLACTONE [Concomitant]
     Active Substance: SPIRONOLACTONE
     Indication: Gastrooesophageal reflux disease
     Route: 048
     Dates: start: 20231101
  13. ONDANSETRON [Concomitant]
     Active Substance: ONDANSETRON
     Indication: Product used for unknown indication
     Dosage: DISINTEGRATING TABLET, PLACE ON TOP OF THE TONGUE WHERE THEY WILL DISSOLVE, THEN SWALLOW
     Route: 048
     Dates: start: 20231102
  14. LISINOPRIL [Concomitant]
     Active Substance: LISINOPRIL
     Indication: Product used for unknown indication
     Dosage: DISINTEGRATING TABLET, PLACE ON TOP OF THE TONGUE WHERE THEY WILL DISSOLVE, THEN SWALLOW
     Route: 048
     Dates: start: 20200126, end: 20231120
  15. OMEPRAZOLE [Concomitant]
     Active Substance: OMEPRAZOLE
     Indication: Gastrooesophageal reflux disease
     Dosage: DELAYED RELEASE, 30 MINUTES BEFORE BREAKFAST
     Route: 048
     Dates: start: 20230203
  16. OMEPRAZOLE [Concomitant]
     Active Substance: OMEPRAZOLE
     Indication: Product used for unknown indication

REACTIONS (3)
  - Confusional state [Recovered/Resolved]
  - Product use issue [Unknown]
  - Inability to afford medication [Unknown]

NARRATIVE: CASE EVENT DATE: 20230101
